FAERS Safety Report 14008743 (Version 1)
Quarter: 2017Q3

REPORT INFORMATION
  Report Type: Spontaneous
  Country: GB (occurrence: GB)
  Receive Date: 20170925
  Receipt Date: 20170925
  Transmission Date: 20171128
  Serious: Yes (Other)
  Sender: FDA-Public Use
  Company Number: GB-TEVA-807766ACC

PATIENT

DRUGS (3)
  1. METRONIDAZOLE. [Suspect]
     Active Substance: METRONIDAZOLE
     Route: 048
  2. OMEPRAZOLE. [Suspect]
     Active Substance: OMEPRAZOLE
     Route: 050
  3. AMOXICILLIN. [Suspect]
     Active Substance: AMOXICILLIN
     Route: 048

REACTIONS (5)
  - Abnormal loss of weight [Unknown]
  - Abdominal pain upper [Unknown]
  - Nausea [Unknown]
  - Dysgeusia [Unknown]
  - Asthenia [Unknown]

NARRATIVE: CASE EVENT DATE: 20170823
